FAERS Safety Report 5387215-3 (Version None)
Quarter: 2007Q3

REPORT INFORMATION
  Report Type: 
  Country: None (occurrence: None)
  Receive Date: 20070711
  Receipt Date: 20070626
  Transmission Date: 20080115
  Serious: Yes (Hospitalization)
  Sender: FDA-Public Use
  Company Number: S07-GER-02879-01

PATIENT
  Age: 25 Year
  Sex: Female
  Weight: 76 kg

DRUGS (3)
  1. CITALOPRAM HYDROBROMIDE [Suspect]
     Dosage: 40 MG QD PO
     Route: 048
     Dates: start: 20030501
  2. CIATYL (CLOPENTHIXOL HYDROCHLORIDE) [Suspect]
     Dosage: 10 MG QD PO
     Route: 048
     Dates: start: 20060801, end: 20070221
  3. CIATYL (CLOPENTHIXOL HYDROCHLORIDE) [Suspect]
     Dosage: 5 MG QD PO
     Route: 048
     Dates: start: 20070222, end: 20070223

REACTIONS (2)
  - BLOOD PRESSURE FLUCTUATION [None]
  - OBESITY [None]
